FAERS Safety Report 7955165-1 (Version None)
Quarter: 2011Q4

REPORT INFORMATION
  Report Type: 
  Country: None (occurrence: None)
  Receive Date: 20111202
  Receipt Date: 20111122
  Transmission Date: 20120403
  Serious: Yes (Other)
  Sender: FDA-Public Use
  Company Number: US-JNJFOC-20111109919

PATIENT
  Sex: Female
  Weight: 80.29 kg

DRUGS (5)
  1. REQUIP [Concomitant]
     Indication: RESTLESS LEGS SYNDROME
     Dosage: 2MG/TABLET/2MG/HS
     Route: 048
     Dates: start: 19990101
  2. SOMA [Concomitant]
     Indication: RESTLESS LEGS SYNDROME
     Dosage: 350MG/TABLET/350MG/1 TABLET IN AM AND PM
     Route: 048
     Dates: start: 19990101
  3. REMICADE [Suspect]
     Indication: CROHN'S DISEASE
     Route: 042
  4. REMICADE [Suspect]
     Route: 042
     Dates: end: 20111122
  5. KLONOPIN [Concomitant]
     Indication: RESTLESS LEGS SYNDROME
     Dosage: 2MG/TABLET/2MG/HS
     Route: 048
     Dates: start: 19990101

REACTIONS (7)
  - HEPATIC CIRRHOSIS [None]
  - GALLBLADDER NON-FUNCTIONING [None]
  - TYPE 2 DIABETES MELLITUS [None]
  - PAIN [None]
  - PYREXIA [None]
  - COUGH [None]
  - NASOPHARYNGITIS [None]
